FAERS Safety Report 8336076-9 (Version None)
Quarter: 2012Q2

REPORT INFORMATION
  Report Type: 
  Country: None (occurrence: None)
  Receive Date: 20120504
  Receipt Date: 20120427
  Transmission Date: 20120825
  Serious: No
  Sender: FDA-Public Use
  Company Number: US-JNJFOC-20110801111

PATIENT
  Sex: Female
  Weight: 58.97 kg

DRUGS (11)
  1. DURAGESIC-100 [Suspect]
     Route: 062
     Dates: start: 20111101
  2. DURAGESIC-100 [Suspect]
     Route: 062
  3. TYLENOL W/ CODEINE NO. 3 [Concomitant]
     Indication: CANCER PAIN
     Route: 065
  4. OXYCODONE HCL [Concomitant]
     Indication: CANCER PAIN
     Route: 065
  5. DURAGESIC-100 [Suspect]
     Indication: OVARIAN CANCER
     Route: 062
     Dates: start: 20111101
  6. DURAGESIC-100 [Suspect]
     Route: 062
     Dates: start: 20111101
  7. DURAGESIC-100 [Suspect]
     Indication: CANCER PAIN
     Route: 062
     Dates: start: 20110501
  8. FENTANYL-100 [Suspect]
     Indication: OVARIAN CANCER
     Route: 062
     Dates: start: 20111101, end: 20111101
  9. XANAX [Concomitant]
     Route: 065
  10. DURAGESIC-100 [Suspect]
     Route: 062
     Dates: start: 20110501
  11. DURAGESIC-100 [Suspect]
     Indication: PAIN
     Route: 062
     Dates: start: 20110501

REACTIONS (3)
  - PRODUCT QUALITY ISSUE [None]
  - WRONG TECHNIQUE IN DRUG USAGE PROCESS [None]
  - DRUG INEFFECTIVE [None]
